FAERS Safety Report 7635270-X (Version None)
Quarter: 2011Q3

REPORT INFORMATION
  Report Type: 
  Country: None (occurrence: None)
  Receive Date: 20110718
  Receipt Date: 20110701
  Transmission Date: 20111222
  Serious: Yes (Hospitalization)
  Sender: FDA-Public Use
  Company Number: VALP20110004

PATIENT
  Age: 63 Year
  Sex: Male

DRUGS (1)
  1. VALPROIC ACID [Suspect]
     Indication: BIPOLAR DISORDER
     Dosage: 1000 MG, 1 IN 1 D,

REACTIONS (6)
  - HYPOTENSION [None]
  - RENAL FAILURE CHRONIC [None]
  - HYPONATRAEMIA [None]
  - HYPERKALAEMIA [None]
  - CONDITION AGGRAVATED [None]
  - ADRENOCORTICAL INSUFFICIENCY ACUTE [None]
